FAERS Safety Report 7021004-9 (Version None)
Quarter: 2010Q3

REPORT INFORMATION
  Report Type: 
  Country: None (occurrence: None)
  Receive Date: 20100929
  Receipt Date: 20100921
  Transmission Date: 20110219
  Serious: Yes (Hospitalization, Other)
  Sender: FDA-Public Use
  Company Number: US-PFIZER INC-2010120024

PATIENT
  Sex: Female
  Weight: 58.503 kg

DRUGS (5)
  1. XALATAN [Suspect]
     Indication: INTRAOCULAR PRESSURE INCREASED
     Dosage: 2 GTT, 1X/DAY
     Route: 047
     Dates: start: 20100801
  2. METOPROLOL [Concomitant]
     Indication: HYPERTENSION
     Dosage: 50 MG, 2X/DAY
     Route: 048
  3. ATACAND HCT [Concomitant]
     Indication: HYPERTENSION
     Dosage: [CANDESARTAN CILEXETIL 33MG]/[HYDROCHLOROTHIAZIDE 12.5MG]
     Route: 048
  4. RANITIDINE [Concomitant]
     Indication: GASTRIC DISORDER
     Dosage: 150 MG, 1X/DAY
     Route: 048
  5. WARFARIN [Concomitant]
     Indication: HEART RATE IRREGULAR
     Dosage: 5 MG, 1X/DAY
     Route: 048

REACTIONS (2)
  - HEADACHE [None]
  - VISUAL ACUITY REDUCED [None]
